FAERS Safety Report 15995307 (Version 3)
Quarter: 2019Q1

REPORT INFORMATION
  Report Type: Report from Study
  Country: CO (occurrence: CO)
  Receive Date: 20190222
  Receipt Date: 20190313
  Transmission Date: 20190418
  Serious: Yes (Hospitalization)
  Sender: FDA-Public Use
  Company Number: PHHY2019CO040768

PATIENT
  Sex: Female
  Weight: 65 kg

DRUGS (4)
  1. FEMARA [Suspect]
     Active Substance: LETROZOLE
     Indication: METASTASES TO BONE
  2. KISQALI [Suspect]
     Active Substance: RIBOCICLIB
     Indication: BREAST CANCER METASTATIC
     Dosage: 600 MG, QD (EVERY 24 HRS)
     Route: 048
     Dates: start: 20190201, end: 20190211
  3. KISQALI [Suspect]
     Active Substance: RIBOCICLIB
     Indication: METASTASES TO BONE
  4. FEMARA [Suspect]
     Active Substance: LETROZOLE
     Indication: BREAST CANCER METASTATIC
     Dosage: 2.5 MG, QD (EVERY 24 HOURS)
     Route: 048
     Dates: start: 20190201, end: 20190211

REACTIONS (6)
  - Arthralgia [Not Recovered/Not Resolved]
  - Arthritis [Recovered/Resolved]
  - Fluid retention [Recovered/Resolved]
  - Influenza [Recovered/Resolved]
  - Cough [Unknown]
  - Pain in extremity [Not Recovered/Not Resolved]
